FAERS Safety Report 8901750 (Version 1)
Quarter: 2012Q4

REPORT INFORMATION
  Report Type: Spontaneous
  Country: US (occurrence: None)
  Receive Date: 20121105
  Receipt Date: 20121105
  Transmission Date: 20130627
  Serious: Yes (Death, Hospitalization, Other)
  Sender: FDA-Public Use
  Company Number: 2012PL000187

PATIENT
  Age: 26 Year
  Sex: Male

DRUGS (6)
  1. PROLEUKIN [Suspect]
     Indication: DRUG USE FOR UNKNOWN INDICATION
     Route: 042
  2. CYCLOSPORINE [Suspect]
     Indication: IMMUNOSUPPRESSION
  3. VP-16 [Concomitant]
  4. GM-CSF [Concomitant]
  5. IRRATIDATION [Concomitant]
  6. RADIOTHERAPY [Concomitant]

REACTIONS (7)
  - Injection site inflammation [None]
  - Myalgia [None]
  - Pain [None]
  - Accident [None]
  - Type IV hypersensitivity reaction [None]
  - Malignant neoplasm progression [None]
  - General physical health deterioration [None]
